FAERS Safety Report 8785430 (Version 2)
Quarter: 2012Q4

REPORT INFORMATION
  Report Type: 
  Country: IL (occurrence: IL)
  Receive Date: 20120914
  Receipt Date: 20121116
  Transmission Date: 20130627
  Serious: Yes (Death, Hospitalization)
  Sender: FDA-Public Use
  Company Number: IL-SP-2012-08119

PATIENT
  Sex: Female

DRUGS (2)
  1. RABIES VACCINE [Suspect]
     Indication: IMMUNISATION
     Route: 030
     Dates: start: 2011, end: 2011
  2. IMMUNOGLOBULIN HUMAN ANTIRABIES [Suspect]
     Indication: IMMUNISATION
     Route: 065
     Dates: start: 2011, end: 2011

REACTIONS (3)
  - Drug ineffective [Fatal]
  - Neutralising antibodies negative [Fatal]
  - Sepsis [Fatal]
